FAERS Safety Report 7213059-3 (Version None)
Quarter: 2011Q1

REPORT INFORMATION
  Report Type: 
  Country: None (occurrence: None)
  Receive Date: 20110106
  Receipt Date: 20101227
  Transmission Date: 20110831
  Serious: Yes (Hospitalization)
  Sender: FDA-Public Use
  Company Number: B0692052A

PATIENT
  Sex: Female
  Weight: 55.1 kg

DRUGS (16)
  1. ALKERAN [Suspect]
     Indication: STEM CELL TRANSPLANT
     Dosage: 140MGM2 PER DAY
     Route: 042
     Dates: start: 20090723, end: 20090723
  2. PREDONINE [Concomitant]
     Dosage: 20MG PER DAY
     Dates: start: 20090723, end: 20090723
  3. SOLDEM [Concomitant]
     Dosage: 1500ML PER DAY
     Route: 042
     Dates: start: 20090723, end: 20090727
  4. AMBISOME [Suspect]
     Dosage: 100MG PER DAY
     Route: 042
     Dates: start: 20090814, end: 20090822
  5. LIPITOR [Concomitant]
     Dosage: 10MG PER DAY
     Route: 048
     Dates: start: 20090723, end: 20090822
  6. MEDICON [Concomitant]
     Dosage: 45MG PER DAY
     Route: 048
     Dates: start: 20090723, end: 20090725
  7. FOSFOMYCIN [Concomitant]
     Dosage: 4500MG PER DAY
     Route: 048
     Dates: start: 20090723, end: 20090725
  8. TAKEPRON [Concomitant]
     Dosage: 30MG PER DAY
     Route: 048
     Dates: start: 20090723, end: 20090804
  9. MIYA BM [Concomitant]
     Dosage: 3G PER DAY
     Route: 048
     Dates: start: 20090724, end: 20090804
  10. SEISHOKU [Concomitant]
     Dosage: 100ML PER DAY
     Route: 042
     Dates: start: 20090727, end: 20090810
  11. PICILLIBACTA [Suspect]
     Dosage: 3G PER DAY
     Route: 042
     Dates: start: 20090813, end: 20090820
  12. NEUTROGIN [Concomitant]
     Dates: start: 20090730, end: 20090805
  13. KYTRIL [Concomitant]
     Dosage: 3MG PER DAY
     Route: 042
     Dates: start: 20090723, end: 20090723
  14. ZYLORIC [Concomitant]
     Dosage: 100MG PER DAY
     Route: 048
     Dates: start: 20090723, end: 20090804
  15. PROMAC [Concomitant]
     Dosage: 150MG PER DAY
     Route: 048
     Dates: start: 20090723, end: 20090804
  16. MUCOSOLVAN [Concomitant]
     Dosage: 45MG PER DAY
     Route: 048
     Dates: start: 20090723, end: 20090725

REACTIONS (4)
  - LIVER FUNCTION TEST ABNORMAL [None]
  - HYPOKALAEMIA [None]
  - DIARRHOEA [None]
  - VARICELLA [None]
